FAERS Safety Report 4632025-5 (Version None)
Quarter: 2005Q2

REPORT INFORMATION
  Report Type: 
  Country: None (occurrence: None)
  Receive Date: 20050411
  Receipt Date: 20050404
  Transmission Date: 20051028
  Serious: Yes (Other)
  Sender: FDA-Public Use
  Company Number: PHBS2005IN04843

PATIENT
  Sex: Female

DRUGS (7)
  1. MIACALCIN [Suspect]
     Indication: OSTEOPOROSIS
     Dosage: 200 IU, QD
     Route: 045
  2. TAXIM [Concomitant]
     Dosage: 1 G, UNK
  3. FAMTAC [Concomitant]
     Dosage: 40 MG, UNK
     Route: 048
  4. BECOZYME C FORTE [Concomitant]
  5. ZIGAT [Concomitant]
     Dosage: 400 MG, UNK
     Route: 048
  6. GEMCAL [Concomitant]
     Route: 048
  7. KOLOSOL [Concomitant]
     Route: 048

REACTIONS (3)
  - BLOOD CREATININE INCREASED [None]
  - HALLUCINATION [None]
  - URINE OUTPUT DECREASED [None]
